APPROVED DRUG PRODUCT: TRANDATE
Active Ingredient: LABETALOL HYDROCHLORIDE
Strength: 100MG **Federal Register determination that product was not discontinued or withdrawn for safety or effectiveness reasons**
Dosage Form/Route: TABLET;ORAL
Application: N018716 | Product #001
Applicant: ALVOGEN INC
Approved: May 24, 1985 | RLD: Yes | RS: No | Type: DISCN